FAERS Safety Report 12575630 (Version 1)
Quarter: 2016Q3

REPORT INFORMATION
  Report Type: Spontaneous
  Country: US (occurrence: US)
  Receive Date: 20160720
  Receipt Date: 20160720
  Transmission Date: 20161109
  Serious: Yes (Other)
  Sender: FDA-Public Use
  Company Number: US-ABBVIE-16P-163-1679077-00

PATIENT
  Sex: Female

DRUGS (1)
  1. LUPRON [Suspect]
     Active Substance: LEUPROLIDE ACETATE
     Indication: ENDOMETRIOSIS
     Route: 050

REACTIONS (10)
  - Uterine cancer [Unknown]
  - Foetal death [Unknown]
  - Pain [Unknown]
  - Ovarian cancer [Unknown]
  - Cervical vertebral fracture [Unknown]
  - Stillbirth [Unknown]
  - Surgery [Unknown]
  - Exposure during pregnancy [Unknown]
  - Hysterectomy [Unknown]
  - Galactorrhoea [Unknown]
